FAERS Safety Report 12637331 (Version 1)
Quarter: 2016Q3

REPORT INFORMATION
  Report Type: Spontaneous
  Country: US (occurrence: US)
  Receive Date: 20160809
  Receipt Date: 20160809
  Transmission Date: 20161109
  Serious: No
  Sender: FDA-Public Use
  Company Number: US-BEH-2015056515

PATIENT
  Age: 69 Year
  Sex: Male
  Weight: 81 kg

DRUGS (16)
  1. L-M-X [Concomitant]
  2. AUGMENTIN [Concomitant]
     Active Substance: AMOXICILLIN\CLAVULANATE POTASSIUM
     Dosage: 875-125MG
  3. VITAMIN B-12-FOLIC ACID [Concomitant]
  4. LISINOPRIL. [Concomitant]
     Active Substance: LISINOPRIL
  5. DEPO-TESTOSTERONE [Concomitant]
     Active Substance: TESTOSTERONE CYPIONATE
     Dosage: 200 MG/ML
  6. COENZYME Q-10 [Concomitant]
     Dosage: SOFTGEL
  7. CVS VITAMIN D [Concomitant]
     Dosage: SFTGL
  8. SODIUM CHLORIDE. [Concomitant]
     Active Substance: SODIUM CHLORIDE
  9. CIALIS [Concomitant]
     Active Substance: TADALAFIL
  10. PRIVIGEN [Suspect]
     Active Substance: HUMAN IMMUNOGLOBULIN G
     Indication: IMMUNODEFICIENCY COMMON VARIABLE
     Route: 042
     Dates: start: 20130315
  11. ACETAMINOPHEN. [Concomitant]
     Active Substance: ACETAMINOPHEN
  12. DIPHENHYDRAMINE. [Concomitant]
     Active Substance: DIPHENHYDRAMINE
  13. SINGULAIR [Concomitant]
     Active Substance: MONTELUKAST SODIUM
  14. EPI-PEN AUTO-INJECTOR [Concomitant]
  15. EPI-PEN AUTOINJECTOR [Concomitant]
  16. OMNARIS [Concomitant]
     Active Substance: CICLESONIDE

REACTIONS (1)
  - Sinusitis [Unknown]

NARRATIVE: CASE EVENT DATE: 20151111
